FAERS Safety Report 9401243 (Version 3)
Quarter: 2013Q4

REPORT INFORMATION
  Report Type: Spontaneous
  Country: US (occurrence: US)
  Receive Date: 20130715
  Receipt Date: 20131011
  Transmission Date: 20140711
  Serious: Yes (Hospitalization)
  Sender: FDA-Public Use
  Company Number: US-PFIZER INC-2013206306

PATIENT
  Age: 54 Year
  Sex: Male
  Weight: 68.03 kg

DRUGS (4)
  1. LYRICA [Suspect]
     Indication: NEURALGIA
     Dosage: 75 MG, 2X/DAY
  2. LYRICA [Suspect]
     Indication: NEUROPATHY PERIPHERAL
     Dosage: 150 MG, 2X/DAY
     Dates: end: 2013
  3. OXYCODONE [Concomitant]
     Indication: SCIATICA
     Dosage: 30 MG, 5X/DAY
  4. XANAX [Concomitant]
     Indication: ANXIETY
     Dosage: 1 MG, 2X/DAY

REACTIONS (6)
  - Off label use [Unknown]
  - Spinal disorder [Unknown]
  - Gait disturbance [Unknown]
  - Fall [Unknown]
  - Hypoaesthesia [Unknown]
  - Burning sensation [Unknown]
